FAERS Safety Report 17667836 (Version 2)
Quarter: 2020Q3

REPORT INFORMATION
  Report Type: Spontaneous
  Country: BR (occurrence: BR)
  Receive Date: 20200414
  Receipt Date: 20200921
  Transmission Date: 20201102
  Serious: Yes (Other)
  Sender: FDA-Public Use
  Company Number: BR-JNJFOC-20200416917

PATIENT
  Age: 51 Year
  Sex: Female

DRUGS (3)
  1. XARELTO [Suspect]
     Active Substance: RIVAROXABAN
     Indication: THROMBOSIS
     Dosage: 20 MG, QD
     Route: 048
     Dates: start: 201912
  2. LOSARTAN. [Concomitant]
     Active Substance: LOSARTAN
     Indication: HYPERTENSION
     Dosage: 25 MG
  3. ARCOXIA [Concomitant]
     Active Substance: ETORICOXIB
     Indication: PAIN IN EXTREMITY
     Dosage: 1 DF, QD

REACTIONS (1)
  - Tenosynovitis stenosans [Recovering/Resolving]

NARRATIVE: CASE EVENT DATE: 202004
